FAERS Safety Report 5512319-1 (Version None)
Quarter: 2007Q4

REPORT INFORMATION
  Report Type: 
  Country: None (occurrence: None)
  Receive Date: 20071112
  Receipt Date: 20071024
  Transmission Date: 20080405
  Serious: No
  Sender: FDA-Public Use
  Company Number: A0689558A

PATIENT
  Age: 47 Year
  Sex: Female

DRUGS (4)
  1. VERAMYST [Suspect]
     Indication: SINUSITIS
     Dosage: 1SPR TWICE PER DAY
     Route: 045
     Dates: start: 20071020
  2. PROZAC [Concomitant]
  3. PRILOSEC [Concomitant]
  4. ALPRAZOLAM [Concomitant]

REACTIONS (1)
  - CHEST DISCOMFORT [None]
